FAERS Safety Report 9045255 (Version 1)
Quarter: 2013Q1

REPORT INFORMATION
  Report Type: Report from Study
  Country: US (occurrence: US)
  Receive Date: 20130131
  Receipt Date: 20130131
  Transmission Date: 20140127
  Serious: No
  Sender: FDA-Public Use
  Company Number: US-ABBOTT-12P-163-0990792-00

PATIENT
  Age: 49 None
  Sex: Female

DRUGS (4)
  1. HUMIRA [Suspect]
     Indication: PSORIASIS
     Dosage: STARTER KIT: 4-40MG PENS, DAY 1
     Route: 058
     Dates: start: 201209
  2. HUMIRA [Suspect]
     Dosage: 1 PEN ON DAY 5
     Route: 058
  3. HUMIRA [Suspect]
     Dosage: 1 PEN ON DAY 22
     Route: 058
  4. HUMIRA [Suspect]
     Route: 058

REACTIONS (2)
  - Paraesthesia [Unknown]
  - Injection site pain [Unknown]
